FAERS Safety Report 8053488-1 (Version None)
Quarter: 2012Q1

REPORT INFORMATION
  Report Type: 
  Country: None (occurrence: None)
  Receive Date: 20120118
  Receipt Date: 20120113
  Transmission Date: 20120608
  Serious: Yes (Hospitalization, Other)
  Sender: FDA-Public Use
  Company Number: US-PFIZER INC-2012011033

PATIENT
  Sex: Female
  Weight: 74.83 kg

DRUGS (10)
  1. ISOSORBIDE [Concomitant]
     Indication: CARDIAC DISORDER
     Dosage: 30 MG, DAILY
  2. EFFEXOR XR [Suspect]
     Indication: BIPOLAR DISORDER
     Dosage: 75 MG, 2X/DAY
     Route: 048
     Dates: start: 20100101
  3. KLONOPIN [Concomitant]
     Indication: SLEEP DISORDER
     Dosage: 1 MG, DAILY
  4. LAMICTAL [Concomitant]
     Indication: BIPOLAR DISORDER
     Dosage: 25 MG, 2X/DAY
  5. SPIRONOLACTONE [Concomitant]
     Indication: CARDIAC DISORDER
     Dosage: 25 MG, DAILY
  6. LITHIUM CARBONATE [Concomitant]
     Indication: BIPOLAR DISORDER
     Dosage: 150 MG, DAILY
  7. METOPROLOL [Concomitant]
     Indication: CARDIAC DISORDER
     Dosage: 25 MG, DAILY
  8. EFFEXOR XR [Suspect]
     Indication: DEPRESSION
  9. ZOCOR [Concomitant]
     Indication: BLOOD CHOLESTEROL ABNORMAL
     Dosage: 20 MG, DAILY
  10. GABAPENTIN [Concomitant]
     Indication: NEUROPATHY PERIPHERAL
     Dosage: 300 MG, 3X/DAY

REACTIONS (1)
  - UPPER LIMB FRACTURE [None]
